FAERS Safety Report 6273144-X (Version None)
Quarter: 2009Q3

REPORT INFORMATION
  Report Type: 
  Country: None (occurrence: None)
  Receive Date: 20090715
  Receipt Date: 20090715
  Transmission Date: 20100115
  Serious: Yes (Other)
  Sender: FDA-Public Use
  Company Number: None

PATIENT
  Age: 54 Year
  Sex: Female
  Weight: 63.5036 kg

DRUGS (1)
  1. LAMOTRIGINE [Suspect]
     Dosage: 150 MG 1/DAY PO
     Route: 048
     Dates: start: 20090601

REACTIONS (12)
  - ANHEDONIA [None]
  - BIPOLAR DISORDER [None]
  - CRYING [None]
  - DEPRESSION [None]
  - DISEASE RECURRENCE [None]
  - EMOTIONAL DISORDER [None]
  - IRRITABILITY [None]
  - LETHARGY [None]
  - MENTAL DISORDER [None]
  - PERSONALITY CHANGE [None]
  - PRODUCT SUBSTITUTION ISSUE [None]
  - THINKING ABNORMAL [None]
